FAERS Safety Report 9586431 (Version 1)
Quarter: 2013Q4

REPORT INFORMATION
  Report Type: Spontaneous
  Country: US (occurrence: US)
  Receive Date: 20131003
  Receipt Date: 20131003
  Transmission Date: 20140711
  Serious: Yes (Other)
  Sender: FDA-Public Use
  Company Number: US-PFIZER INC-2013281302

PATIENT
  Age: 69 Year
  Sex: Female

DRUGS (3)
  1. NEURONTIN [Suspect]
     Indication: NEURALGIA
     Dosage: THREE CAPSULES ONCE A DAY
     Route: 048
     Dates: start: 2012, end: 201309
  2. NEURONTIN [Suspect]
     Dosage: UNKNOWN DOSE TWO CAPSULES PER WEEK
     Route: 048
     Dates: start: 201309, end: 201309
  3. NEURONTIN [Suspect]
     Dosage: UNKNOWN DOSE ONE CAPSULE PER WEEK
     Route: 048
     Dates: start: 201309, end: 201309

REACTIONS (8)
  - Blood pressure increased [Unknown]
  - Heart rate decreased [Unknown]
  - Dyspnoea [Unknown]
  - Tremor [Unknown]
  - Presyncope [Unknown]
  - Drug hypersensitivity [Unknown]
  - Hyperhidrosis [Unknown]
  - Fear of death [Unknown]
